FAERS Safety Report 10873380 (Version 2)
Quarter: 2017Q3

REPORT INFORMATION
  Report Type: Report from Study
  Country: JP (occurrence: JP)
  Receive Date: 20150227
  Receipt Date: 20170711
  Transmission Date: 20171127
  Serious: No
  Sender: FDA-Public Use
  Company Number: JP-BAYER-2014-172890

PATIENT
  Age: 35 Year
  Sex: Female
  Weight: 49 kg

DRUGS (3)
  1. EVE [IBUPROFEN] [Concomitant]
     Dosage: DAILY DOSE 4 DF
     Route: 048
  2. EVE [IBUPROFEN] [Concomitant]
     Dosage: DAILY DOSE 2 DF
     Route: 048
  3. YAZ [Suspect]
     Active Substance: DROSPIRENONE\ETHINYL ESTRADIOL
     Indication: DYSMENORRHOEA
     Dosage: 1 DF, QD
     Route: 048
     Dates: start: 20140425, end: 20140609

REACTIONS (3)
  - Metrorrhagia [Unknown]
  - Erythema [Recovered/Resolved]
  - Anaemia [Recovered/Resolved]

NARRATIVE: CASE EVENT DATE: 20140512
